FAERS Safety Report 17677113 (Version 4)
Quarter: 2020Q3

REPORT INFORMATION
  Report Type: Other
  Country: US (occurrence: US)
  Receive Date: 20200416
  Receipt Date: 20200701
  Transmission Date: 20201102
  Serious: Yes (Hospitalization)
  Sender: FDA-Public Use
  Company Number: US-AMAG PHARMACEUTICALS, INC.-AMAG202001258

PATIENT
  Age: 30 Year
  Sex: Female
  Weight: 93.07 kg

DRUGS (1)
  1. MAKENA [Suspect]
     Active Substance: HYDROXYPROGESTERONE CAPROATE
     Indication: PREMATURE DELIVERY
     Dosage: 250MG/ML, WEEKLY
     Route: 058

REACTIONS (9)
  - Abdominal pain [Not Recovered/Not Resolved]
  - Injection site erythema [Recovered/Resolved]
  - Muscle spasms [Unknown]
  - Vaginal haemorrhage [Not Recovered/Not Resolved]
  - Injection site pruritus [Recovered/Resolved]
  - Hospitalisation [Recovered/Resolved]
  - Anxiety [Not Recovered/Not Resolved]
  - Injection site rash [Recovered/Resolved]
  - Injection site warmth [Recovered/Resolved]

NARRATIVE: CASE EVENT DATE: 2020
